FAERS Safety Report 20068518 (Version 6)
Quarter: 2023Q4

REPORT INFORMATION
  Report Type: Report from Study
  Country: US (occurrence: US)
  Receive Date: 20211115
  Receipt Date: 20231116
  Transmission Date: 20240110
  Serious: Yes (Other)
  Sender: FDA-Public Use
  Company Number: US-TAKEDA-US201937501

PATIENT
  Sex: Female

DRUGS (2)
  1. HUMAN IMMUNOGLOBULIN G\HYALURONIDASE RECOMBINANT HUMAN [Suspect]
     Active Substance: HUMAN IMMUNOGLOBULIN G\HYALURONIDASE (HUMAN RECOMBINANT)
     Indication: Immunodeficiency common variable
     Dosage: UNK
     Route: 065
  2. COVID-19 VACCINE NOS [Suspect]
     Active Substance: COVID-19 VACCINE NOS
     Indication: COVID-19 immunisation
     Dosage: UNK
     Route: 065

REACTIONS (14)
  - Transient ischaemic attack [Unknown]
  - Endometrial thickening [Recovered/Resolved]
  - Urinary tract infection [Recovered/Resolved]
  - Insurance issue [Unknown]
  - COVID-19 [Unknown]
  - Brain fog [Unknown]
  - Allergy to vaccine [Unknown]
  - Blood sodium decreased [Unknown]
  - Gastroenteritis viral [Unknown]
  - Hypoaesthesia [Unknown]
  - Headache [Unknown]
  - Fatigue [Unknown]
  - Nausea [Unknown]
  - Inappropriate schedule of product administration [Unknown]
